FAERS Safety Report 6758541-8 (Version None)
Quarter: 2010Q2

REPORT INFORMATION
  Report Type: 
  Country: None (occurrence: None)
  Receive Date: 20100607
  Receipt Date: 20100528
  Transmission Date: 20101027
  Serious: Yes (Hospitalization)
  Sender: FDA-Public Use
  Company Number: B0659145A

PATIENT
  Sex: Female

DRUGS (2)
  1. AMOXICILLIN AND CLAVULANATE POTASSIUM [Suspect]
     Dosage: 2G PER DAY
     Route: 048
     Dates: start: 20100516, end: 20100523
  2. VELAMOX [Suspect]
     Route: 065
     Dates: start: 20100513, end: 20100514

REACTIONS (3)
  - HAEMATEMESIS [None]
  - HEADACHE [None]
  - VOMITING [None]
